FAERS Safety Report 22823685 (Version 4)
Quarter: 2023Q4

REPORT INFORMATION
  Report Type: Spontaneous
  Country: US (occurrence: US)
  Receive Date: 20230815
  Receipt Date: 20231016
  Transmission Date: 20240109
  Serious: Yes (Other)
  Sender: FDA-Public Use
  Company Number: US-PFIZER INC-PV202300137823

PATIENT
  Age: 70 Year
  Sex: Female
  Weight: 49.252 kg

DRUGS (9)
  1. TALZENNA [Suspect]
     Active Substance: TALAZOPARIB TOSYLATE
     Indication: Soft tissue sarcoma
     Dosage: 0.75 MG, DAILY (TAKE 1 CAPSULE DAILY)
     Route: 048
     Dates: start: 20230724, end: 20230730
  2. TALZENNA [Suspect]
     Active Substance: TALAZOPARIB TOSYLATE
     Indication: Malignant neoplasm of thorax
     Dosage: 0.25 MG
     Dates: start: 20230818, end: 20230824
  3. TALZENNA [Suspect]
     Active Substance: TALAZOPARIB TOSYLATE
     Indication: Uterine cancer
     Dosage: 0.5 MG, DAILY
     Route: 048
     Dates: start: 20230825
  4. TALZENNA [Suspect]
     Active Substance: TALAZOPARIB TOSYLATE
     Indication: Leiomyosarcoma
  5. LEVOTHYROXINE [Concomitant]
     Active Substance: LEVOTHYROXINE
     Dosage: 100 UG
     Dates: start: 2015
  6. CLOPIDOGREL [Concomitant]
     Active Substance: CLOPIDOGREL BISULFATE
     Dosage: UNK
     Dates: start: 2020
  7. METOPROLOL [Concomitant]
     Active Substance: METOPROLOL
     Dosage: 75 MG, 2X/DAY
     Dates: start: 2017
  8. AMLODIPINE [Concomitant]
     Active Substance: AMLODIPINE BESYLATE
     Dosage: 10 MG, DAILY
  9. ZOFRAN [Concomitant]
     Active Substance: ONDANSETRON HYDROCHLORIDE
     Dosage: 8 MG, AS NEEDED

REACTIONS (8)
  - Neuropathy peripheral [Not Recovered/Not Resolved]
  - Blood iron decreased [Recovered/Resolved]
  - Myalgia [Recovered/Resolved]
  - Asthenia [Recovered/Resolved]
  - Malaise [Recovered/Resolved]
  - Nausea [Not Recovered/Not Resolved]
  - Decreased appetite [Not Recovered/Not Resolved]
  - Off label use [Not Recovered/Not Resolved]
